FAERS Safety Report 14187715 (Version 1)
Quarter: 2017Q4

REPORT INFORMATION
  Report Type: Spontaneous
  Country: CN (occurrence: CN)
  Receive Date: 20171114
  Receipt Date: 20171114
  Transmission Date: 20180321
  Serious: Yes (Other)
  Sender: FDA-Public Use
  Company Number: CN-ABBVIE-17P-035-2162318-00

PATIENT
  Age: 63 Year
  Sex: Male

DRUGS (1)
  1. DEPAKINE CHRONO [Suspect]
     Active Substance: VALPROATE SODIUM
     Indication: EPILEPSY
     Route: 048
     Dates: start: 20170728, end: 20170819

REACTIONS (2)
  - Hepatic function abnormal [Recovering/Resolving]
  - Nausea [Recovering/Resolving]

NARRATIVE: CASE EVENT DATE: 20170819
